FAERS Safety Report 7773858-6 (Version None)
Quarter: 2011Q3

REPORT INFORMATION
  Report Type: 
  Country: None (occurrence: None)
  Receive Date: 20110920
  Receipt Date: 20110915
  Transmission Date: 20111222
  Serious: Yes (Death, Life-Threatening, Other)
  Sender: FDA-Public Use
  Company Number: 2008SP013161

PATIENT
  Age: 12 Year
  Sex: Female
  Weight: 36 kg

DRUGS (17)
  1. FUNGIZONE [Concomitant]
  2. MAGMITT [Concomitant]
  3. ACETAMINOPHEN [Concomitant]
  4. , [Concomitant]
  5. DEPAKENE [Suspect]
     Indication: CONVULSION PROPHYLAXIS
     Dosage: PO
     Route: 048
  6. SULFAMETHOXAZOLE [Concomitant]
  7. NAVOBAN [Concomitant]
  8. TEMODAL [Suspect]
     Indication: ANAPLASTIC ASTROCYTOMA
     Dosage: 75 MG/M2; QD PO 150 MG/M2; QD; PO 200 MG/M2;QD;PO
     Route: 048
     Dates: start: 20080614, end: 20080618
  9. TEMODAL [Suspect]
     Indication: ANAPLASTIC ASTROCYTOMA
     Dosage: 75 MG/M2; QD PO 150 MG/M2; QD; PO 200 MG/M2;QD;PO
     Route: 048
     Dates: start: 20071113, end: 20071117
  10. TEMODAL [Suspect]
     Indication: ANAPLASTIC ASTROCYTOMA
     Dosage: 75 MG/M2; QD PO 150 MG/M2; QD; PO 200 MG/M2;QD;PO
     Route: 048
     Dates: start: 20080119, end: 20080123
  11. TEMODAL [Suspect]
     Indication: ANAPLASTIC ASTROCYTOMA
     Dosage: 75 MG/M2; QD PO 150 MG/M2; QD; PO 200 MG/M2;QD;PO
     Route: 048
     Dates: start: 20071013, end: 20071017
  12. TEMODAL [Suspect]
     Indication: ANAPLASTIC ASTROCYTOMA
     Dosage: 75 MG/M2; QD PO 150 MG/M2; QD; PO 200 MG/M2;QD;PO
     Route: 048
     Dates: start: 20080223, end: 20080227
  13. TEMODAL [Suspect]
     Indication: ANAPLASTIC ASTROCYTOMA
     Dosage: 75 MG/M2; QD PO 150 MG/M2; QD; PO 200 MG/M2;QD;PO
     Route: 048
     Dates: start: 20080402, end: 20080406
  14. TEMODAL [Suspect]
     Indication: ANAPLASTIC ASTROCYTOMA
     Dosage: 75 MG/M2; QD PO 150 MG/M2; QD; PO 200 MG/M2;QD;PO
     Route: 048
     Dates: start: 20080719, end: 20080723
  15. TEMODAL [Suspect]
     Indication: ANAPLASTIC ASTROCYTOMA
     Dosage: 75 MG/M2; QD PO 150 MG/M2; QD; PO 200 MG/M2;QD;PO
     Route: 048
     Dates: start: 20070725, end: 20070904
  16. TEMODAL [Suspect]
     Indication: ANAPLASTIC ASTROCYTOMA
     Dosage: 75 MG/M2; QD PO 150 MG/M2; QD; PO 200 MG/M2;QD;PO
     Route: 048
     Dates: start: 20071215, end: 20071219
  17. TEMODAL [Suspect]
     Indication: ANAPLASTIC ASTROCYTOMA
     Dosage: 75 MG/M2; QD PO 150 MG/M2; QD; PO 200 MG/M2;QD;PO
     Route: 048
     Dates: start: 20080503, end: 20080507

REACTIONS (9)
  - CONVULSION [None]
  - PNEUMONIA [None]
  - NEUTROPHIL COUNT DECREASED [None]
  - WHITE BLOOD CELL COUNT DECREASED [None]
  - ALTERED STATE OF CONSCIOUSNESS [None]
  - CEREBRAL ATROPHY [None]
  - LYMPHOCYTE COUNT DECREASED [None]
  - ACUTE LYMPHOCYTIC LEUKAEMIA [None]
  - HYDROCEPHALUS [None]
